FAERS Safety Report 4348431-2 (Version None)
Quarter: 2004Q2

REPORT INFORMATION
  Report Type: 
  Country: None (occurrence: None)
  Receive Date: 20040422
  Receipt Date: 20040413
  Transmission Date: 20050107
  Serious: Yes (Life-Threatening, Hospitalization, Other)
  Sender: FDA-Public Use
  Company Number: 2004025253

PATIENT
  Age: 44 Year
  Sex: Male

DRUGS (6)
  1. NORVASC [Suspect]
     Indication: ILL-DEFINED DISORDER
     Dates: end: 20040301
  2. DILTIAZEM HYDROCHLORIDE [Suspect]
     Indication: HYPERTENSION
     Dosage: 360 MG DAILY , ORAL
     Route: 048
     Dates: start: 20040301, end: 20040301
  3. FOSINOPRIL SODIUM [Concomitant]
  4. HYZAAR [Concomitant]
  5. GLIBOMET (GLIBENCLAMIDE, METFORMIN HYDROCHLORIDE) [Concomitant]
  6. ATORVASTATIN [Concomitant]

REACTIONS (7)
  - ACUTE GENERALISED EXANTHEMATOUS PUSTULOSIS [None]
  - BLOOD PRESSURE INADEQUATELY CONTROLLED [None]
  - BODY TEMPERATURE INCREASED [None]
  - DERMATITIS EXFOLIATIVE [None]
  - EYE SWELLING [None]
  - HYPOACUSIS [None]
  - RENAL FAILURE [None]
